FAERS Safety Report 18530844 (Version 8)
Quarter: 2022Q2

REPORT INFORMATION
  Report Type: Report from Study
  Country: US (occurrence: US)
  Receive Date: 20201121
  Receipt Date: 20220505
  Transmission Date: 20220721
  Serious: Yes (Other)
  Sender: FDA-Public Use
  Company Number: US-NOVARTISPH-NVSC2020US300859

PATIENT
  Age: 58 Year
  Sex: Female

DRUGS (1)
  1. KESIMPTA [Suspect]
     Active Substance: OFATUMUMAB
     Indication: Product used for unknown indication
     Dosage: 20 MG, QMO
     Route: 058
     Dates: start: 20201014

REACTIONS (12)
  - Multiple sclerosis [Unknown]
  - Concomitant disease aggravated [Unknown]
  - Confusional state [Unknown]
  - Hip fracture [Unknown]
  - Femur fracture [Unknown]
  - Hypoaesthesia [Unknown]
  - Chondrosarcoma [Unknown]
  - Stress [Unknown]
  - Fall [Unknown]
  - Lower limb fracture [Unknown]
  - Foot fracture [Unknown]
  - Fibula fracture [Unknown]

NARRATIVE: CASE EVENT DATE: 20210211
